FAERS Safety Report 8572815-X (Version None)
Quarter: 2012Q3

REPORT INFORMATION
  Report Type: 
  Country: None (occurrence: None)
  Receive Date: 20120806
  Receipt Date: 20120722
  Transmission Date: 20120928
  Serious: Yes (Other)
  Sender: FDA-Public Use
  Company Number: ES-ROCHE-GNE257471

PATIENT

DRUGS (9)
  1. VINCRISTINE [Concomitant]
     Indication: DIFFUSE LARGE B-CELL LYMPHOMA
     Dosage: 1.4 MG/M2, Q3W
     Route: 042
  2. METHOTREXATE [Concomitant]
     Indication: PROPHYLAXIS
     Dosage: 12 MG, UNK
     Route: 037
  3. DOXORUBICIN HCL [Concomitant]
     Indication: DIFFUSE LARGE B-CELL LYMPHOMA
     Dosage: 50 MG/M2, Q3W
     Route: 042
  4. MABTHERA [Suspect]
     Indication: DIFFUSE LARGE B-CELL LYMPHOMA
  5. CYTARABINE [Concomitant]
     Indication: PROPHYLAXIS
     Dosage: 40 MG, UNK
  6. CYCLOPHOSPHAMIDE [Concomitant]
     Indication: DIFFUSE LARGE B-CELL LYMPHOMA
     Dosage: 750 MG/M2, Q3W
     Route: 042
  7. PREDNISONE [Concomitant]
     Indication: DIFFUSE LARGE B-CELL LYMPHOMA
     Dosage: 40 MG/M2, QDX5D/21DC
     Route: 048
  8. HYDROCORTISONE [Concomitant]
     Indication: PROPHYLAXIS
     Dosage: 20 MG, UNK
  9. ANTIRETROVIRAL NOS [Concomitant]
     Indication: HIV INFECTION

REACTIONS (1)
  - OESOPHAGEAL CANDIDIASIS [None]
